FAERS Safety Report 5199834-8 (Version None)
Quarter: 2007Q1

REPORT INFORMATION
  Report Type: 
  Country: None (occurrence: None)
  Receive Date: 20070105
  Receipt Date: 20061229
  Transmission Date: 20070707
  Serious: Yes (Life-Threatening)
  Sender: FDA-Public Use
  Company Number: FR-BAXTER-2006BH014982

PATIENT
  Age: 55 Year
  Sex: Male

DRUGS (4)
  1. GAMMAGARD [Suspect]
     Indication: POLYMYOSITIS
     Route: 042
  2. METHOTREXATE [Concomitant]
     Indication: POLYMYOSITIS
     Dosage: DOSE UNIT:UNKNOWN
     Route: 065
  3. AZATHIOPRINE [Concomitant]
     Indication: POLYMYOSITIS
     Dosage: DOSE UNIT:UNKNOWN
     Route: 065
  4. CYCLOPHOSPHAMIDE [Concomitant]
     Indication: POLYMYOSITIS
     Dosage: DOSE UNIT:UNKNOWN
     Route: 065

REACTIONS (2)
  - CATHETER RELATED COMPLICATION [None]
  - VENA CAVA THROMBOSIS [None]
